FAERS Safety Report 6159147-4 (Version None)
Quarter: 2009Q2

REPORT INFORMATION
  Report Type: 
  Country: None (occurrence: None)
  Receive Date: 20090417
  Receipt Date: 20090416
  Transmission Date: 20091009
  Serious: Yes (Life-Threatening, Hospitalization)
  Sender: FDA-Public Use
  Company Number: US-RB-014441-09

PATIENT
  Age: 44 Year
  Sex: Female

DRUGS (2)
  1. SUBOXONE [Suspect]
     Route: 060
     Dates: start: 20080101, end: 20080405
  2. SUBOXONE [Suspect]
     Route: 060
     Dates: start: 20090409

REACTIONS (1)
  - CONVULSION [None]
